FAERS Safety Report 24118307 (Version 1)
Quarter: 2024Q3

REPORT INFORMATION
  Report Type: Spontaneous
  Country: US (occurrence: US)
  Receive Date: 20240722
  Receipt Date: 20240722
  Transmission Date: 20241017
  Serious: No
  Sender: MERCK
  Company Number: US-009507513-2406USA007407

PATIENT
  Age: 70 Year
  Sex: Male

DRUGS (3)
  1. INVANZ [Suspect]
     Active Substance: ERTAPENEM SODIUM
     Indication: Pasteurella infection
     Dosage: UNK
     Route: 042
  2. INVANZ [Suspect]
     Active Substance: ERTAPENEM SODIUM
     Indication: Pneumonia bacterial
  3. INVANZ [Suspect]
     Active Substance: ERTAPENEM SODIUM
     Indication: Empyema

REACTIONS (1)
  - Product use in unapproved indication [Unknown]
